FAERS Safety Report 21996913 (Version 1)
Quarter: 2023Q1

REPORT INFORMATION
  Report Type: Spontaneous
  Country: US (occurrence: US)
  Receive Date: 20230215
  Receipt Date: 20230215
  Transmission Date: 20230418
  Serious: No
  Sender: FDA-Public Use
  Company Number: US-Teikoku Pharma USA-TPU2023-00029

PATIENT
  Age: 51 Year
  Sex: Female
  Weight: 108.96 kg

DRUGS (6)
  1. LIDODERM [Suspect]
     Active Substance: LIDOCAINE
     Indication: Accident at work
     Route: 061
     Dates: start: 20230107, end: 20230108
  2. TYLENOL [Concomitant]
     Active Substance: ACETAMINOPHEN
  3. ADVIL [Concomitant]
     Active Substance: IBUPROFEN
  4. CALCIUM CITRATE [Concomitant]
     Active Substance: CALCIUM CITRATE
  5. One a Day Multivitamins [Concomitant]
  6. THERATEARS [Concomitant]
     Active Substance: CARBOXYMETHYLCELLULOSE SODIUM
     Indication: Dry eye
     Dosage: ONE DROP IN EACH EYE FOUR TIMES DAILY

REACTIONS (2)
  - Product availability issue [Not Recovered/Not Resolved]
  - Pain [Not Recovered/Not Resolved]

NARRATIVE: CASE EVENT DATE: 20230101
